FAERS Safety Report 10167931 (Version 1)
Quarter: 2014Q2

REPORT INFORMATION
  Report Type: Spontaneous
  Country: US (occurrence: US)
  Receive Date: 20140512
  Receipt Date: 20140512
  Transmission Date: 20141212
  Serious: Yes (Hospitalization)
  Sender: FDA-Public Use
  Company Number: US-GLAXOSMITHKLINE-A1071930A

PATIENT
  Age: 41 Year
  Sex: Male

DRUGS (12)
  1. ADVAIR [Suspect]
     Indication: ASTHMA
     Dosage: 1PUFF TWICE PER DAY
     Route: 055
     Dates: start: 2001
  2. LYRICA [Concomitant]
  3. LISINOPRIL [Concomitant]
  4. LEVOTHYROXINE [Concomitant]
  5. SINGULAIR [Concomitant]
  6. PANTOPRAZOLE [Concomitant]
  7. GLIMEPIRIDE [Concomitant]
  8. METFORMIN [Concomitant]
  9. MORPHINE [Concomitant]
  10. HYDROCODONE [Concomitant]
  11. FLUTICASONE NASAL SPRAY [Concomitant]
  12. PNEUMONIA SHOT [Concomitant]

REACTIONS (11)
  - Pneumonia [Recovered/Resolved]
  - Dysphonia [Not Recovered/Not Resolved]
  - Speech disorder [Not Recovered/Not Resolved]
  - Amnesia [Not Recovered/Not Resolved]
  - Bronchitis [Recovered/Resolved]
  - Dyspnoea [Unknown]
  - Wheezing [Unknown]
  - Cough [Unknown]
  - Drug ineffective [Recovered/Resolved]
  - Drug dose omission [Unknown]
  - Underdose [Unknown]
